FAERS Safety Report 21789889 (Version 1)
Quarter: 2022Q4

REPORT INFORMATION
  Report Type: Spontaneous
  Country: FR (occurrence: FR)
  Receive Date: 20221228
  Receipt Date: 20221228
  Transmission Date: 20230113
  Serious: Yes (Hospitalization, Other)
  Sender: FDA-Public Use
  Company Number: None

PATIENT
  Age: 65 Year
  Sex: Male
  Weight: 59 kg

DRUGS (3)
  1. VENETOCLAX [Suspect]
     Active Substance: VENETOCLAX
     Indication: Acute myeloid leukaemia
     Dosage: 14 DAYS/28
     Route: 048
     Dates: start: 20220708
  2. VIDAZA [Suspect]
     Active Substance: AZACITIDINE
     Indication: Acute myeloid leukaemia
     Dosage: 127 MG/DAY SUBCUTANEOUSLY FOR 7 DAYS
     Route: 058
     Dates: start: 20220708
  3. POSACONAZOLE [Suspect]
     Active Substance: POSACONAZOLE
     Indication: Antifungal prophylaxis
     Dosage: MORNING
     Route: 048
     Dates: start: 20220714

REACTIONS (5)
  - Acute myeloid leukaemia [Unknown]
  - Congestive cardiomyopathy [Recovered/Resolved]
  - Essential tremor [Unknown]
  - Escherichia bacteraemia [Unknown]
  - Stenotrophomonas infection [Unknown]

NARRATIVE: CASE EVENT DATE: 20220812
